FAERS Safety Report 16961696 (Version 1)
Quarter: 2019Q4

REPORT INFORMATION
  Report Type: Spontaneous
  Country: US (occurrence: US)
  Receive Date: 20191024
  Receipt Date: 20191024
  Transmission Date: 20200122
  Serious: Yes (Life-Threatening, Hospitalization)
  Sender: FDA-Public Use
  Company Number: None

PATIENT
  Age: 63 Year
  Sex: Male
  Weight: 92 kg

DRUGS (6)
  1. CLONIDINE. [Concomitant]
     Active Substance: CLONIDINE
     Dates: start: 20151001
  2. CARVEDILOL. [Concomitant]
     Active Substance: CARVEDILOL
     Dates: start: 20190402
  3. ATENOLOL. [Concomitant]
     Active Substance: ATENOLOL
     Dates: start: 20151001
  4. MINOXIDIL. [Concomitant]
     Active Substance: MINOXIDIL
     Dates: start: 20190402
  5. APIXABAN [Suspect]
     Active Substance: APIXABAN
     Indication: ATRIAL FIBRILLATION
     Route: 048
     Dates: start: 20190501, end: 20190830
  6. SACUBITRIL-VALSARTAN [Concomitant]
     Active Substance: SACUBITRIL\VALSARTAN
     Dates: start: 20190403

REACTIONS (2)
  - Lower gastrointestinal haemorrhage [None]
  - Hypotension [None]

NARRATIVE: CASE EVENT DATE: 20190930
